FAERS Safety Report 22279944 (Version 1)
Quarter: 2023Q2

REPORT INFORMATION
  Report Type: Spontaneous
  Country: None (occurrence: US)
  Receive Date: 20230503
  Receipt Date: 20230503
  Transmission Date: 20230721
  Serious: No
  Sender: FDA-Public Use
  Company Number: US-B.Braun Medical Inc.-2141085

PATIENT
  Age: 49 Year
  Sex: Female
  Weight: 127.27 kg

DRUGS (1)
  1. SODIUM CHLORIDE [Suspect]
     Active Substance: SODIUM CHLORIDE

REACTIONS (3)
  - Flushing [Recovering/Resolving]
  - Asthenia [Recovering/Resolving]
  - Throat tightness [Recovering/Resolving]
